FAERS Safety Report 7126859-5 (Version None)
Quarter: 2010Q4

REPORT INFORMATION
  Report Type: 
  Country: None (occurrence: None)
  Receive Date: 20101129
  Receipt Date: 20091021
  Transmission Date: 20110411
  Serious: Yes (Other)
  Sender: FDA-Public Use
  Company Number: US-PFIZER INC-2009288420

PATIENT
  Sex: Male
  Weight: 110.67 kg

DRUGS (1)
  1. VIAGRA [Suspect]

REACTIONS (1)
  - ERECTION INCREASED [None]
